FAERS Safety Report 7586774-X (Version None)
Quarter: 2011Q3

REPORT INFORMATION
  Report Type: 
  Country: None (occurrence: None)
  Receive Date: 20110701
  Receipt Date: 20110629
  Transmission Date: 20111222
  Serious: Yes (Death)
  Sender: FDA-Public Use
  Company Number: AT-B.I. PHARMACEUTICALS,INC./RIDGEFIELD-2011-AP-00354AP

PATIENT
  Sex: Male
  Weight: 66 kg

DRUGS (5)
  1. MEDICATION FOR DEMENTIA [Concomitant]
     Indication: DEMENTIA
  2. ANTI-HYPERTENSIVE MEDICATION [Concomitant]
     Indication: HYPERTENSION
  3. PRAMIPEXOLE DIHYCHLLORIDE [Suspect]
     Indication: PARKINSON'S DISEASE
     Dosage: 0.26 MG
     Dates: start: 20110302
  4. PRAMIPEXOLE DIHYCHLLORIDE [Suspect]
     Dosage: 0.52 MG
     Dates: start: 20110310
  5. L-DOPA+BENSERAZID [Concomitant]
     Dosage: 150/37.5 MG
     Dates: start: 20110310

REACTIONS (1)
  - DEATH [None]
